FAERS Safety Report 10790794 (Version 3)
Quarter: 2015Q4

REPORT INFORMATION
  Report Type: Report from Study
  Country: US (occurrence: US)
  Receive Date: 20150212
  Receipt Date: 20151210
  Transmission Date: 20160304
  Serious: Yes (Hospitalization)
  Sender: FDA-Public Use
  Company Number: US-ACTELION-A-US2015-112508

PATIENT
  Age: 69 Year
  Sex: Male

DRUGS (3)
  1. TRACLEER [Suspect]
     Active Substance: BOSENTAN
     Indication: PULMONARY ARTERIAL HYPERTENSION
     Dosage: UNK
     Route: 048
  2. ADCIRCA [Concomitant]
     Active Substance: TADALAFIL
  3. REMODULIN [Concomitant]
     Active Substance: TREPROSTINIL

REACTIONS (6)
  - Clostridium difficile infection [Unknown]
  - Sepsis [Unknown]
  - Right ventricular failure [Unknown]
  - Pain [Unknown]
  - Hepatic enzyme increased [Unknown]
  - Liver disorder [Unknown]
